FAERS Safety Report 9932226 (Version 1)
Quarter: 2014Q1

REPORT INFORMATION
  Report Type: Spontaneous
  Country: US (occurrence: US)
  Receive Date: 20140228
  Receipt Date: 20140228
  Transmission Date: 20141002
  Serious: No
  Sender: FDA-Public Use
  Company Number: US-ABBVIE-13P-163-1182177-00

PATIENT
  Sex: Male
  Weight: 123.03 kg

DRUGS (8)
  1. ANDROGEL [Suspect]
     Indication: BLOOD TESTOSTERONE DECREASED
     Route: 061
     Dates: start: 201212
  2. GABAPENTIN [Concomitant]
     Indication: PAIN
  3. BUPRENORPHINE [Concomitant]
     Indication: PAIN
  4. SEROQUEL [Concomitant]
     Indication: DEPRESSION
  5. CYMBALTA [Concomitant]
     Indication: DEPRESSION
  6. CLONAZEPAM [Concomitant]
     Indication: ANXIETY
  7. CARISOPRODOL [Concomitant]
     Indication: MUSCLE SPASMS
  8. AMBIEN CR [Concomitant]
     Indication: INSOMNIA

REACTIONS (2)
  - Drug administered at inappropriate site [Unknown]
  - Application site pruritus [Not Recovered/Not Resolved]
